FAERS Safety Report 9541087 (Version 1)
Quarter: 2013Q3

REPORT INFORMATION
  Report Type: Spontaneous
  Country: CA (occurrence: CA)
  Receive Date: 20130923
  Receipt Date: 20130923
  Transmission Date: 20140515
  Serious: Yes (Other)
  Sender: FDA-Public Use
  Company Number: CA-ROCHE-1279029

PATIENT
  Age: 27 Year
  Sex: Female
  Weight: 63 kg

DRUGS (8)
  1. CELLCEPT [Suspect]
     Indication: PRODUCT USED FOR UNKNOWN INDICATION
     Dosage: THERAPY DURATION: 156 DAYS
     Route: 048
  2. CALCIUM CARBONATE [Concomitant]
     Route: 065
  3. CLOPIXOL [Concomitant]
     Route: 065
  4. HUMULIN [Concomitant]
     Route: 065
  5. PLAQUENIL [Concomitant]
     Route: 065
  6. QUETIAPINE [Concomitant]
     Route: 065
  7. SOLU-MEDROL [Concomitant]
     Route: 065
  8. SYNTHROID [Concomitant]
     Route: 065

REACTIONS (1)
  - Sinus tachycardia [Recovered/Resolved]
